FAERS Safety Report 7996291-0 (Version None)
Quarter: 2011Q4

REPORT INFORMATION
  Report Type: 
  Country: None (occurrence: None)
  Receive Date: 20111220
  Receipt Date: 20111207
  Transmission Date: 20120403
  Serious: Yes (Hospitalization, Other)
  Sender: FDA-Public Use
  Company Number: US-AMGEN GMBH-QUU432895

PATIENT
  Age: 33 Year
  Sex: Male
  Weight: 70.8 kg

DRUGS (29)
  1. LOVAZA [Concomitant]
     Dosage: 1200 MG, QD
     Route: 048
  2. CEFEPIME [Concomitant]
     Dosage: UNK UNK, PRN
  3. OLANZAPINE [Concomitant]
     Dosage: 10 MG, BID
  4. VALACYCLOVIR HYDROCHLORIDE [Concomitant]
     Dosage: 500 MG, QD
     Route: 048
  5. ZINC [Concomitant]
     Dosage: UNK UNK, QD
     Route: 048
  6. BIOTIN [Concomitant]
     Dosage: UNK UNK, QD
     Route: 048
  7. RETINOL [Concomitant]
     Dosage: UNK UNK, 2 TIMES/WK
  8. BACITRACIN [Concomitant]
     Dosage: UNK UNK, UNK
  9. RENALTABS [Concomitant]
     Dosage: UNK UNK, QD
  10. CALCIUM CARBONATE [Concomitant]
     Dosage: UNK UNK, QID
     Route: 048
  11. TOCOPHEROL CONCENTRATE CAP [Concomitant]
     Dosage: UNK UNK, 2 TIMES/WK
     Route: 048
  12. VENOFER [Concomitant]
     Dosage: UNK UNK, QWK
  13. CALCIUM ACETATE [Concomitant]
     Dosage: 667 MG, UNK
     Route: 048
  14. CYANOCOBALAMIN [Concomitant]
     Dosage: UNK UNK, QD
     Route: 048
  15. LISINOPRIL [Concomitant]
     Dosage: 20 MG, BID
     Route: 048
     Dates: start: 20070926
  16. TRIMETHOPRIM + SULFAMETHOXAZOLE [Concomitant]
     Dosage: UNK UNK, 3 TIMES/WK
  17. PREDNISONE TAB [Concomitant]
     Dosage: 5 MG, QD
     Route: 048
  18. LABETALOL HYDROCHLORIDE [Concomitant]
     Dosage: 100 MG, BID
     Route: 048
  19. COPPER [Concomitant]
     Dosage: UNK UNK, QOD
     Dates: start: 20100112
  20. ARANESP [Suspect]
     Indication: DIALYSIS
     Dosage: 100 MUG, QWK
     Route: 042
     Dates: start: 20070920, end: 20100827
  21. GENTAMYCIN SULFATE [Concomitant]
     Dosage: .1 %, QD
     Route: 061
  22. PHYTONADIONE [Concomitant]
     Dosage: UNK UNK, QWK
     Route: 048
  23. MULTIPLE VITAMINS [Concomitant]
     Dosage: UNK UNK, QD
     Route: 048
  24. COENZYME Q10 [Concomitant]
     Dosage: UNK UNK, QD
     Route: 048
  25. ASPIRIN [Concomitant]
     Dosage: 81 MG, UNK
  26. UNSPECIFIED MEDICATION [Concomitant]
  27. MYCOPHENOLATE MOFETIL [Concomitant]
     Dosage: 500 MG, TID
     Route: 048
  28. L-LYSINE [Concomitant]
     Dosage: 1000 MG, BID
     Route: 048
  29. CAFFEINE CITRATE [Concomitant]
     Dosage: 200 MG, BID
     Route: 048

REACTIONS (5)
  - APLASIA PURE RED CELL [None]
  - NEUTROPENIA [None]
  - MALNUTRITION [None]
  - EPISTAXIS [None]
  - ANAEMIA [None]
